FAERS Safety Report 10136543 (Version 1)
Quarter: 2014Q2

REPORT INFORMATION
  Report Type: Spontaneous
  Country: US (occurrence: None)
  Receive Date: 20140425
  Receipt Date: 20140425
  Transmission Date: 20141212
  Serious: Yes (Disabling, Other)
  Sender: FDA-Public Use
  Company Number: None

PATIENT
  Age: 48 Year
  Sex: Female
  Weight: 90.72 kg

DRUGS (2)
  1. METHYLPHENIDATE ER [Suspect]
     Indication: NARCOLEPSY
     Dosage: 1 TABLET, TWICE DAILY, TAKEN BY MOUTH
     Route: 048
     Dates: start: 20140123, end: 20140418
  2. METHYLPHENIDATE ER [Suspect]
     Indication: CATAPLEXY
     Dosage: 1 TABLET, TWICE DAILY, TAKEN BY MOUTH
     Route: 048
     Dates: start: 20140123, end: 20140418

REACTIONS (9)
  - Formication [None]
  - Headache [None]
  - Cataplexy [None]
  - Fatigue [None]
  - Depression [None]
  - Activities of daily living impaired [None]
  - Weight increased [None]
  - No therapeutic response [None]
  - Product substitution issue [None]
